FAERS Safety Report 25062236 (Version 1)
Quarter: 2025Q1

REPORT INFORMATION
  Report Type: Spontaneous
  Country: US (occurrence: US)
  Receive Date: 20250311
  Receipt Date: 20250311
  Transmission Date: 20250409
  Serious: No
  Sender: HIKMA
  Company Number: HIKM2401796

PATIENT
  Sex: Female

DRUGS (1)
  1. BUPIVACAINE [Suspect]
     Active Substance: BUPIVACAINE
     Indication: Anaesthesia
     Dosage: 15 MILLILITER, QD
     Route: 065
     Dates: start: 20240320

REACTIONS (1)
  - Drug ineffective [Unknown]
